FAERS Safety Report 5351336-1 (Version None)
Quarter: 2007Q2

REPORT INFORMATION
  Report Type: 
  Country: None (occurrence: None)
  Receive Date: 20070608
  Receipt Date: 20070605
  Transmission Date: 20071010
  Serious: Yes (Hospitalization)
  Sender: FDA-Public Use
  Company Number: US-BOEHRINGER INGELHEIM PHARMACEUTICALS, INC.-2007-BP-07014BP

PATIENT
  Age: 57 Year
  Sex: Female

DRUGS (11)
  1. SPIRIVA [Suspect]
     Indication: CHRONIC OBSTRUCTIVE PULMONARY DISEASE
     Route: 055
     Dates: start: 20060201
  2. SPIRIVA [Suspect]
     Indication: ASTHMA
  3. SPIRIVA [Suspect]
     Indication: EMPHYSEMA
  4. SINGULAIR [Concomitant]
  5. ALBUTEROL [Concomitant]
  6. PHENOBARBITAL TAB [Concomitant]
  7. PREMARIN [Concomitant]
  8. LEVOTHYROXINE SODIUM [Concomitant]
  9. PROVERA [Concomitant]
  10. LISINOPRIL [Concomitant]
  11. PRO AIR INHALER [Concomitant]

REACTIONS (2)
  - DYSPNOEA [None]
  - NASOPHARYNGITIS [None]
